FAERS Safety Report 6422077-4 (Version None)
Quarter: 2009Q4

REPORT INFORMATION
  Report Type: 
  Country: None (occurrence: None)
  Receive Date: 20091029
  Receipt Date: 20091029
  Transmission Date: 20100525
  Serious: Yes (Hospitalization, Other)
  Sender: FDA-Public Use
  Company Number: None

PATIENT
  Age: 26 Year
  Sex: Male
  Weight: 78.9 kg

DRUGS (7)
  1. MYCOPHENOLATE MOFETIL [Suspect]
     Indication: IMMUNOSUPPRESSION
     Dosage: 1000 MG BID PO
     Route: 048
     Dates: start: 20090910, end: 20091001
  2. MYCOPHENOLATE MOFETIL [Suspect]
     Indication: RENAL TRANSPLANT
     Dosage: 1000 MG BID PO
     Route: 048
     Dates: start: 20090910, end: 20091001
  3. TACROLIMUS [Suspect]
     Indication: IMMUNOSUPPRESSION
     Dosage: 4 MG BID PO
     Route: 048
     Dates: start: 20090910, end: 20091001
  4. TACROLIMUS [Suspect]
     Indication: RENAL TRANSPLANT
     Dosage: 4 MG BID PO
     Route: 048
     Dates: start: 20090910, end: 20091001
  5. PREDNISONE [Concomitant]
  6. MACRODANTIN [Concomitant]
  7. OMEPRAZOLE [Concomitant]

REACTIONS (3)
  - INFLUENZA LIKE ILLNESS [None]
  - KIDNEY TRANSPLANT REJECTION [None]
  - PRODUCT SUBSTITUTION ISSUE [None]
